FAERS Safety Report 22035316 (Version 1)
Quarter: 2023Q1

REPORT INFORMATION
  Report Type: Spontaneous
  Country: GB (occurrence: GB)
  Receive Date: 20230224
  Receipt Date: 20230224
  Transmission Date: 20230418
  Serious: Yes (Other)
  Sender: FDA-Public Use
  Company Number: GB-BAXTER-2023BAX011453

PATIENT
  Age: 72 Year
  Sex: Male

DRUGS (7)
  1. OBINUTUZUMAB [Suspect]
     Active Substance: OBINUTUZUMAB
     Indication: Chronic lymphocytic leukaemia
     Dosage: 100 MG AT UNSPECIFIED FREQUENCY
     Route: 042
     Dates: start: 20230125, end: 20230125
  2. CHLORPHENIRAMINE MALEATE [Suspect]
     Active Substance: CHLORPHENIRAMINE MALEATE
     Indication: Premedication
     Dosage: 10 MG AT UNSPECIFIED FREQUENCY
     Route: 040
     Dates: start: 20230125
  3. RASBURICASE [Suspect]
     Active Substance: RASBURICASE
     Indication: Prophylaxis
     Dosage: 15 MG AT UNSPECIFIED FREQUENCY
     Route: 042
     Dates: start: 20230125
  4. SODIUM CHLORIDE [Suspect]
     Active Substance: SODIUM CHLORIDE
     Indication: Medication dilution
     Route: 042
     Dates: start: 20230125, end: 20230125
  5. ACETAMINOPHEN [Suspect]
     Active Substance: ACETAMINOPHEN
     Indication: Premedication
     Dosage: 1 G AT UNSPECIFIED FREQUENCY
     Route: 048
     Dates: start: 20230125
  6. ALLOPURINOL [Suspect]
     Active Substance: ALLOPURINOL
     Indication: Prophylaxis
     Dosage: 300 MG AT UNSPECIFIED FREQUENCY
     Route: 048
     Dates: start: 20230118
  7. DEXAMETHASONE [Suspect]
     Active Substance: DEXAMETHASONE
     Indication: Premedication
     Dosage: 20 MG AT UNSPECIFIED FREQUENCY
     Route: 040
     Dates: start: 20230125

REACTIONS (5)
  - Flushing [Recovered/Resolved]
  - Heart rate decreased [Recovered/Resolved]
  - Dizziness [Recovered/Resolved]
  - Retching [Recovered/Resolved]
  - Hypotension [Recovered/Resolved]

NARRATIVE: CASE EVENT DATE: 20230125
